FAERS Safety Report 6685340-8 (Version None)
Quarter: 2010Q2

REPORT INFORMATION
  Report Type: 
  Country: None (occurrence: None)
  Receive Date: 20100416
  Receipt Date: 20090812
  Transmission Date: 20101027
  Serious: No
  Sender: FDA-Public Use
  Company Number: US-AMGEN-KDL359822

PATIENT
  Sex: Female

DRUGS (9)
  1. SENSIPAR [Suspect]
     Indication: DRUG USE FOR UNKNOWN INDICATION
     Dates: start: 20080601
  2. METHOTREXATE [Concomitant]
  3. PREDNISONE [Concomitant]
  4. DICYCLOMIDE HCL [Concomitant]
  5. PREMARIN [Concomitant]
  6. COZAAR [Concomitant]
  7. FELODIPINE [Concomitant]
  8. OMEPRAZOLE [Concomitant]
  9. CALCITRIOL [Concomitant]

REACTIONS (1)
  - BLOOD PARATHYROID HORMONE INCREASED [None]
